FAERS Safety Report 9898300 (Version 5)
Quarter: 2014Q4

REPORT INFORMATION
  Report Type: Report from Study
  Country: US (occurrence: US)
  Receive Date: 20140214
  Receipt Date: 20141222
  Transmission Date: 20150529
  Serious: Yes (Hospitalization)
  Sender: FDA-Public Use
  Company Number: US-SA-2013SA132373

PATIENT
  Age: 51 Year
  Sex: Female
  Weight: 150 kg

DRUGS (1)
  1. AUBAGIO [Suspect]
     Active Substance: TERIFLUNOMIDE
     Indication: MULTIPLE SCLEROSIS
     Route: 048
     Dates: start: 20131201

REACTIONS (10)
  - Blindness [Recovered/Resolved]
  - Vision blurred [Recovered/Resolved]
  - Stress [Unknown]
  - Diarrhoea [Unknown]
  - Band sensation [Unknown]
  - Nausea [Unknown]
  - Unevaluable event [Unknown]
  - Influenza like illness [Unknown]
  - Rash [Recovering/Resolving]
  - Weight decreased [Unknown]

NARRATIVE: CASE EVENT DATE: 20131216
